FAERS Safety Report 5316674-7 (Version None)
Quarter: 2007Q2

REPORT INFORMATION
  Report Type: 
  Country: None (occurrence: None)
  Receive Date: 20070430
  Receipt Date: 20070430
  Transmission Date: 20071010
  Serious: Yes (Other)
  Sender: FDA-Public Use
  Company Number: None

PATIENT
  Age: 63 Year
  Sex: Female
  Weight: 80.7403 kg

DRUGS (1)
  1. VARENICLINE TARTRATE 0.5MG PFIZER [Suspect]
     Indication: SMOKING CESSATION THERAPY
     Dosage: .5MG BID PO
     Route: 048
     Dates: start: 20070115, end: 20070408

REACTIONS (1)
  - PRURITUS [None]
